FAERS Safety Report 14822323 (Version 2)
Quarter: 2018Q2

REPORT INFORMATION
  Report Type: Spontaneous
  Country: US (occurrence: US)
  Receive Date: 20180427
  Receipt Date: 20180518
  Transmission Date: 20180711
  Serious: No
  Sender: FDA-Public Use
  Company Number: US-BEH-2018090150

PATIENT
  Sex: Male
  Weight: 88.44 kg

DRUGS (15)
  1. ASPIRIN. [Concomitant]
     Active Substance: ASPIRIN
  2. FLONASE [Concomitant]
     Active Substance: FLUTICASONE PROPIONATE
  3. RANITIDINE. [Concomitant]
     Active Substance: RANITIDINE
  4. HAEGARDA [Suspect]
     Active Substance: HUMAN C1-ESTERASE INHIBITOR
     Dosage: UNK
     Route: 058
  5. HAEGARDA [Suspect]
     Active Substance: HUMAN C1-ESTERASE INHIBITOR
     Indication: PROPHYLAXIS
     Dosage: UNK
     Route: 058
  6. RESTASIS [Concomitant]
     Active Substance: CYCLOSPORINE
  7. METFORMIN [Concomitant]
     Active Substance: METFORMIN HYDROCHLORIDE
  8. HAEGARDA [Suspect]
     Active Substance: HUMAN C1-ESTERASE INHIBITOR
     Indication: HEREDITARY ANGIOEDEMA
     Dosage: 5000 IU, BIW
     Route: 058
     Dates: start: 20180213
  9. SIMVASTATIN. [Concomitant]
     Active Substance: SIMVASTATIN
  10. VOLTAREN [Concomitant]
     Active Substance: DICLOFENAC SODIUM
  11. FIRAZYR [Concomitant]
     Active Substance: ICATIBANT ACETATE
  12. EPINEPHRINE. [Concomitant]
     Active Substance: EPINEPHRINE
  13. NORVASC [Concomitant]
     Active Substance: AMLODIPINE BESYLATE
  14. PANTOPRAZOLE [Concomitant]
     Active Substance: PANTOPRAZOLE
  15. ZETIA [Concomitant]
     Active Substance: EZETIMIBE

REACTIONS (1)
  - Injection site bruising [Unknown]
